FAERS Safety Report 13275909 (Version 3)
Quarter: 2018Q2

REPORT INFORMATION
  Report Type: Report from Study
  Country: US (occurrence: US)
  Receive Date: 20170228
  Receipt Date: 20180615
  Transmission Date: 20180711
  Serious: Yes (Other)
  Sender: FDA-Public Use
  Company Number: PHEH2017US005834

PATIENT
  Sex: Female

DRUGS (2)
  1. COSENTYX [Suspect]
     Active Substance: SECUKINUMAB
     Indication: PSORIATIC ARTHROPATHY
  2. COSENTYX [Suspect]
     Active Substance: SECUKINUMAB
     Indication: PUSTULAR PSORIASIS
     Dosage: 300 MG, QW
     Route: 065

REACTIONS (12)
  - Skin exfoliation [Unknown]
  - Skin weeping [Unknown]
  - Hypersensitivity [Unknown]
  - Rhinorrhoea [Unknown]
  - Staphylococcal infection [Unknown]
  - Blister [Unknown]
  - Skin atrophy [Unknown]
  - Injection site pain [Not Recovered/Not Resolved]
  - Malaise [Unknown]
  - Cough [Unknown]
  - Psoriasis [Unknown]
  - Pain of skin [Unknown]
